FAERS Safety Report 18166677 (Version 2)
Quarter: 2020Q4

REPORT INFORMATION
  Report Type: Spontaneous
  Country: JP (occurrence: JP)
  Receive Date: 20200819
  Receipt Date: 20201001
  Transmission Date: 20210113
  Serious: Yes (Other)
  Sender: FDA-Public Use
  Company Number: JP-TEVA-2020-JP-1815144

PATIENT
  Age: 75 Year
  Sex: Male

DRUGS (16)
  1. IRINOTECAN [Suspect]
     Active Substance: IRINOTECAN
     Indication: COLON CANCER
     Dosage: RECEIVED AS A PART OF FOLFIRI
     Route: 065
     Dates: start: 201704
  2. DAIKENCHUTO [Concomitant]
     Active Substance: HERBALS
     Indication: PRODUCT USED FOR UNKNOWN INDICATION
     Route: 048
  3. FLUOROURACIL. [Concomitant]
     Active Substance: FLUOROURACIL
     Indication: COLON CANCER
     Dosage: FLUOROURACIL (RAPID); RECEIVED AS A PART OF FOLFIRI
     Route: 065
     Dates: start: 201704
  4. BEVACIZUMAB. [Concomitant]
     Active Substance: BEVACIZUMAB
     Indication: COLON CANCER
     Dosage: RECEIVED WITH MFOLFOX6
     Route: 065
     Dates: start: 201610
  5. FLUOROURACIL. [Concomitant]
     Active Substance: FLUOROURACIL
     Indication: COLON CANCER
     Dosage: FLUOROURACIL (SUSTAINED); RECEIVED AS A PART OF MFOLFOX6
     Route: 065
     Dates: start: 201610
  6. FLUOROURACIL. [Concomitant]
     Active Substance: FLUOROURACIL
     Indication: COLON CANCER
     Dosage: FLUOROURACIL (SUSTAINED); RECEIVED AS A PART OF FOLFIRI
     Route: 065
     Dates: start: 201704
  7. LEVOFOLINATE [Concomitant]
     Active Substance: LEVOLEUCOVORIN CALCIUM
     Indication: COLON CANCER
     Dosage: RECEIVED AS A PART OF FOLFIRI
     Route: 065
     Dates: start: 201704
  8. MAGNESIUM OXIDE. [Concomitant]
     Active Substance: MAGNESIUM OXIDE
     Indication: PRODUCT USED FOR UNKNOWN INDICATION
     Route: 048
  9. LEVOFOLINATE [Concomitant]
     Active Substance: LEVOLEUCOVORIN CALCIUM
     Indication: COLON CANCER
     Dosage: RECEIVED AS A PART OF MFOLFOX6
     Route: 065
     Dates: start: 201610
  10. BEVACIZUMAB. [Concomitant]
     Active Substance: BEVACIZUMAB
     Indication: COLON CANCER
     Dosage: RECEIVED WITH FOLFIRI
     Route: 065
     Dates: start: 201704
  11. OXALIPLATIN. [Suspect]
     Active Substance: OXALIPLATIN
     Indication: COLON CANCER
     Dosage: RECEIVED AS A PART OF MFOLFOX6
     Route: 065
     Dates: start: 201610
  12. REBAMIPIDE [Concomitant]
     Active Substance: REBAMIPIDE
     Indication: PRODUCT USED FOR UNKNOWN INDICATION
     Route: 048
  13. FLUOROURACIL. [Concomitant]
     Active Substance: FLUOROURACIL
     Indication: COLON CANCER
     Dosage: FLUOROURACIL (RAPID); RECEIVED AS A PART OF MFOLFOX6
     Route: 065
     Dates: start: 201610
  14. KOLANTYL [Concomitant]
     Active Substance: DICYCLOMINE HYDROCHLORIDE
     Indication: PRODUCT USED FOR UNKNOWN INDICATION
     Dosage: FORMULATION: GRANULES
     Route: 048
  15. LANSOPRAZOLE. [Concomitant]
     Active Substance: LANSOPRAZOLE
     Indication: PRODUCT USED FOR UNKNOWN INDICATION
     Route: 048
  16. OXETHAZAINE [Concomitant]
     Active Substance: OXETHAZAINE
     Indication: PRODUCT USED FOR UNKNOWN INDICATION
     Route: 048

REACTIONS (4)
  - Neutropenia [Unknown]
  - Neuropathy peripheral [Not Recovered/Not Resolved]
  - Drug hypersensitivity [Unknown]
  - Neuropathy peripheral [Recovering/Resolving]
